FAERS Safety Report 6818306-5 (Version None)
Quarter: 2010Q3

REPORT INFORMATION
  Report Type: 
  Country: None (occurrence: None)
  Receive Date: 20100706
  Receipt Date: 20070820
  Transmission Date: 20110219
  Serious: Yes (Other)
  Sender: FDA-Public Use
  Company Number: US-PFIZER INC-2007033627

PATIENT
  Age: 29 Year
  Sex: Female
  Weight: 58.5 kg

DRUGS (2)
  1. ZITHROMAX [Suspect]
     Indication: OROPHARYNGEAL PAIN
  2. URSO 250 [Concomitant]

REACTIONS (1)
  - HEPATITIS [None]
